FAERS Safety Report 25779808 (Version 1)
Quarter: 2025Q3

REPORT INFORMATION
  Report Type: Spontaneous
  Country: US (occurrence: None)
  Receive Date: 20250908
  Receipt Date: 20250908
  Transmission Date: 20251020
  Serious: Yes (Other)
  Sender: FDA-CTU
  Company Number: None

PATIENT
  Sex: Female

DRUGS (4)
  1. NALTREXONE HYDROCHLORIDE [Suspect]
     Active Substance: NALTREXONE HYDROCHLORIDE
     Indication: Weight decreased
     Dosage: FREQUENCY : TWICE A DAY;?
     Route: 048
     Dates: start: 20250603, end: 20250906
  2. buPROPion HCl ER (XL) Oral Tablet Extended Release 24 Hour 150 MG [Concomitant]
     Dates: start: 20250419, end: 20250906
  3. metFORMIN 500 mg tablet, extended release [Concomitant]
     Dates: start: 20250419, end: 20250906
  4. ONDANSETRON [Concomitant]
     Active Substance: ONDANSETRON
     Dates: start: 20250603, end: 20250906

REACTIONS (2)
  - Hernia [None]
  - Vomiting [None]
